FAERS Safety Report 7111580-X (Version None)
Quarter: 2010Q4

REPORT INFORMATION
  Report Type: 
  Country: None (occurrence: None)
  Receive Date: 20101118
  Receipt Date: 20101115
  Transmission Date: 20110411
  Serious: Yes (Hospitalization, Other)
  Sender: FDA-Public Use
  Company Number: IN-PFIZER INC-2010139891

PATIENT
  Age: 62 Year
  Sex: Female

DRUGS (4)
  1. DAXID [Suspect]
     Indication: DIABETIC NEPHROPATHY
     Dosage: 50 MG, 1X/DAY
     Route: 048
  2. DAXID [Suspect]
     Indication: DEPRESSION
  3. METFORMIN [Concomitant]
     Indication: DIABETES MELLITUS
     Dosage: 500 MG, 3X/DAY
     Route: 048
  4. LOSARTAN [Concomitant]
     Indication: HYPERTENSION
     Dosage: 50 MG, 1X/DAY
     Route: 048

REACTIONS (3)
  - FALL [None]
  - HIP FRACTURE [None]
  - SEDATION [None]
